FAERS Safety Report 21671253 (Version 2)
Quarter: 2022Q4

REPORT INFORMATION
  Report Type: Other
  Country: TW (occurrence: None)
  Receive Date: 20221202
  Receipt Date: 20221228
  Transmission Date: 20230113
  Serious: Yes (Other)
  Sender: FDA-Public Use
  Company Number: TW-MLMSERVICE-20221122-3924154-1

PATIENT
  Age: 28 Year
  Sex: Male

DRUGS (8)
  1. MYCOPHENOLATE MOFETIL [Suspect]
     Active Substance: MYCOPHENOLATE MOFETIL
     Indication: Prophylaxis against transplant rejection
     Route: 065
  2. TACROLIMUS [Suspect]
     Active Substance: TACROLIMUS
     Indication: Prophylaxis against transplant rejection
     Dosage: FOR 1 WEEK PRIOR TO OPERATION.
     Route: 065
  3. CARVEDILOL [Concomitant]
     Active Substance: CARVEDILOL
  4. DOXAZOSIN [Concomitant]
     Active Substance: DOXAZOSIN MESYLATE
  5. PREDNISOLONE [Concomitant]
     Active Substance: PREDNISOLONE
  6. PANTOPRAZOLE [Concomitant]
     Active Substance: PANTOPRAZOLE
  7. CEFTRIAXONE [Concomitant]
     Active Substance: CEFTRIAXONE
  8. AMLODIPINE [Concomitant]
     Active Substance: AMLODIPINE BESYLATE

REACTIONS (4)
  - Acute kidney injury [Recovering/Resolving]
  - Hepatitis acute [Recovering/Resolving]
  - Hepatocellular injury [Recovering/Resolving]
  - Liver injury [Recovering/Resolving]
